FAERS Safety Report 8563002-X (Version None)
Quarter: 2012Q3

REPORT INFORMATION
  Report Type: 
  Country: None (occurrence: None)
  Receive Date: 20120802
  Receipt Date: 20120722
  Transmission Date: 20120928
  Serious: No
  Sender: FDA-Public Use
  Company Number: US-AMGEN-USASP2011068602

PATIENT
  Age: 68 Year
  Sex: Female

DRUGS (1)
  1. ENBREL [Suspect]
     Indication: RHEUMATOID ARTHRITIS
     Dosage: 50 MG, QWK
     Dates: start: 20070105, end: 20120713

REACTIONS (11)
  - PHARYNGITIS [None]
  - RHEUMATOID ARTHRITIS [None]
  - RASH [None]
  - COUGH [None]
  - HEADACHE [None]
  - SINUS DISORDER [None]
  - LARYNGITIS [None]
  - HERPES ZOSTER [None]
  - OROPHARYNGEAL PAIN [None]
  - EAR PRURITUS [None]
  - ARTHRITIS INFECTIVE [None]
